FAERS Safety Report 4668639-6 (Version None)
Quarter: 2005Q2

REPORT INFORMATION
  Report Type: 
  Country: None (occurrence: None)
  Receive Date: 20050518
  Receipt Date: 20050504
  Transmission Date: 20051028
  Serious: No
  Sender: FDA-Public Use
  Company Number: A0553627A

PATIENT
  Age: 61 Year
  Sex: Female
  Weight: 78.4269 kg

DRUGS (3)
  1. BEXXAR [Suspect]
     Indication: NON-HODGKIN'S LYMPHOMA
     Dosage: 450 MG/ /INTRAVENOUS
     Route: 042
     Dates: start: 20050408, end: 20050408
  2. PARACETAMOL [Concomitant]
  3. DIPHENHYDRAMINE HCL [Concomitant]

REACTIONS (4)
  - CHEST DISCOMFORT [None]
  - INFUSION RELATED REACTION [None]
  - PRURITUS [None]
  - THROAT TIGHTNESS [None]
